FAERS Safety Report 21812003 (Version 7)
Quarter: 2024Q4

REPORT INFORMATION
  Report Type: Report from Study
  Country: US (occurrence: US)
  Receive Date: 20230103
  Receipt Date: 20241223
  Transmission Date: 20250114
  Serious: Yes (Hospitalization)
  Sender: TAKEDA
  Company Number: US-TAKEDA-US201930383

PATIENT
  Age: 45 Year
  Sex: Male

DRUGS (8)
  1. ICATIBANT [Suspect]
     Active Substance: ICATIBANT ACETATE
     Indication: Immune system disorder
     Dosage: 30 MILLIGRAM
  2. ICATIBANT [Suspect]
     Active Substance: ICATIBANT ACETATE
     Dosage: 30 MILLIGRAM
  3. ICATIBANT [Suspect]
     Active Substance: ICATIBANT ACETATE
     Dosage: 30 MILLIGRAM
  4. ICATIBANT [Suspect]
     Active Substance: ICATIBANT ACETATE
     Dosage: 30 MILLIGRAM
  5. TAKHZYRO [Suspect]
     Active Substance: LANADELUMAB-FLYO
     Indication: Immune system disorder
     Dosage: 300 MILLIGRAM, Q2WEEKS
     Dates: start: 201901
  6. TAKHZYRO [Suspect]
     Active Substance: LANADELUMAB-FLYO
  7. TAKHZYRO [Suspect]
     Active Substance: LANADELUMAB-FLYO
  8. RUCONEST [Concomitant]
     Active Substance: CONESTAT ALFA
     Dosage: UNK

REACTIONS (5)
  - Tachycardia [Unknown]
  - Hereditary angioedema [Recovered/Resolved]
  - COVID-19 [Unknown]
  - Weight decreased [Unknown]
  - Product use issue [Unknown]

NARRATIVE: CASE EVENT DATE: 20220803
